FAERS Safety Report 7623435-2 (Version None)
Quarter: 2011Q3

REPORT INFORMATION
  Report Type: 
  Country: None (occurrence: None)
  Receive Date: 20110720
  Receipt Date: 20110714
  Transmission Date: 20111222
  Serious: Yes (Hospitalization)
  Sender: FDA-Public Use
  Company Number: JP-TEVA-287838ISR

PATIENT
  Sex: Female

DRUGS (2)
  1. PACLITAXEL [Concomitant]
  2. PLATOSIN (CISPLATIN) [Suspect]
     Indication: CERVIX CARCINOMA
     Dates: end: 20110308

REACTIONS (3)
  - HEADACHE [None]
  - PAPILLOEDEMA [None]
  - INTRACRANIAL HYPOTENSION [None]
